FAERS Safety Report 12688307 (Version 1)
Quarter: 2016Q3

REPORT INFORMATION
  Report Type: Spontaneous
  Country: US (occurrence: US)
  Receive Date: 20160825
  Receipt Date: 20160825
  Transmission Date: 20161109
  Serious: No
  Sender: FDA-Public Use
  Company Number: US-NOVOPROD-488533

PATIENT
  Age: 72 Year
  Sex: Male

DRUGS (1)
  1. VICTOZA [Suspect]
     Active Substance: LIRAGLUTIDE
     Indication: TYPE 1 DIABETES MELLITUS
     Route: 058
     Dates: start: 201403

REACTIONS (3)
  - Product quality issue [Recovered/Resolved]
  - Off label use [Not Recovered/Not Resolved]
  - Blood glucose increased [Recovered/Resolved]
